FAERS Safety Report 8585492-9 (Version None)
Quarter: 2012Q3

REPORT INFORMATION
  Report Type: 
  Country: None (occurrence: None)
  Receive Date: 20120810
  Receipt Date: 20120731
  Transmission Date: 20120928
  Serious: Yes (Hospitalization)
  Sender: FDA-Public Use
  Company Number: CN-FRI-1000037657

PATIENT
  Age: 29 Year
  Sex: Female

DRUGS (3)
  1. LEXAPRO [Suspect]
     Indication: ANXIETY
     Dosage: 10 MG
     Route: 048
     Dates: start: 20120620, end: 20120701
  2. TONGTIAN ORAL SOLUTION [Concomitant]
     Dosage: 30 ML
     Route: 048
     Dates: start: 20120701, end: 20120701
  3. JINGWU CAPSULES [Concomitant]
     Indication: ANXIETY
     Dosage: 18 CAPSULES
     Route: 048
     Dates: start: 20120620, end: 20120701

REACTIONS (3)
  - JAUNDICE [None]
  - ASPARTATE AMINOTRANSFERASE INCREASED [None]
  - ALANINE AMINOTRANSFERASE INCREASED [None]
